FAERS Safety Report 7997502-8 (Version None)
Quarter: 2011Q4

REPORT INFORMATION
  Report Type: 
  Country: None (occurrence: None)
  Receive Date: 20111221
  Receipt Date: 20111221
  Transmission Date: 20120403
  Serious: Yes (Hospitalization)
  Sender: FDA-Public Use
  Company Number: None

PATIENT
  Age: 34 Year
  Sex: Female
  Weight: 55.338 kg

DRUGS (1)
  1. THYROGEN [Suspect]
     Indication: THYROID CANCER
     Dates: start: 20111205, end: 20111205

REACTIONS (9)
  - VOMITING [None]
  - SPEECH DISORDER [None]
  - VISUAL ACUITY REDUCED [None]
  - ANAEMIA [None]
  - HEARING IMPAIRED [None]
  - DECREASED APPETITE [None]
  - NAUSEA [None]
  - MOVEMENT DISORDER [None]
  - WHITE BLOOD CELL COUNT ABNORMAL [None]
